FAERS Safety Report 4579070-6 (Version None)
Quarter: 2005Q1

REPORT INFORMATION
  Report Type: 
  Country: None (occurrence: None)
  Receive Date: 20050211
  Receipt Date: 20050203
  Transmission Date: 20050727
  Serious: Yes (Other)
  Sender: FDA-Public Use
  Company Number: US-MERCK-0502USA00784

PATIENT
  Age: 34 Year
  Sex: Male

DRUGS (4)
  1. COSMEGEN [Suspect]
     Indication: EWING'S SARCOMA
     Route: 042
     Dates: start: 19830101
  2. VINCRISTINE SULFATE [Suspect]
     Indication: EWING'S SARCOMA
     Route: 065
     Dates: start: 19830101
  3. CYCLOPHOSPHAMIDE [Suspect]
     Indication: EWING'S SARCOMA
     Route: 065
     Dates: start: 19830101
  4. DOXORUBICIN [Suspect]
     Indication: EWING'S SARCOMA
     Route: 065
     Dates: start: 19830101

REACTIONS (3)
  - ACUTE LYMPHOCYTIC LEUKAEMIA [None]
  - CHROMOSOME ANALYSIS ABNORMAL [None]
  - STEM CELL TRANSPLANT [None]
